FAERS Safety Report 10357068 (Version 1)
Quarter: 2014Q3

REPORT INFORMATION
  Report Type: Spontaneous
  Country: JP (occurrence: JP)
  Receive Date: 20140801
  Receipt Date: 20140801
  Transmission Date: 20150326
  Serious: Yes (Other)
  Sender: FDA-Public Use
  Company Number: JP-ASTRAZENECA-2014SE53871

PATIENT
  Age: 49 Year
  Sex: Male

DRUGS (3)
  1. VERAPAMIL [Suspect]
     Active Substance: VERAPAMIL HYDROCHLORIDE
  2. PILSICAINIDE [Suspect]
     Active Substance: PILSICAINIDE
  3. LIDOCAINE. [Suspect]
     Active Substance: LIDOCAINE
     Indication: ELECTROCARDIOGRAM ABNORMAL

REACTIONS (2)
  - Ventricular extrasystoles [Recovered/Resolved]
  - Ventricular fibrillation [Recovered/Resolved]
